FAERS Safety Report 9459637 (Version 1)
Quarter: 2013Q3

REPORT INFORMATION
  Report Type: Spontaneous
  Country: US (occurrence: US)
  Receive Date: 20130815
  Receipt Date: 20130815
  Transmission Date: 20140515
  Serious: No
  Sender: FDA-Public Use
  Company Number: US-COVIDIEN/TYCO HEALTHCARE/MALLINCKRODT-T201302781

PATIENT
  Age: 52 Year
  Sex: Female
  Weight: 45.35 kg

DRUGS (3)
  1. FENTANYL TRANSDERMAL SYSTEM [Suspect]
     Indication: BACK PAIN
     Dosage: 50 UG/HR, Q 72 HRS
     Route: 061
     Dates: start: 20130501
  2. LYRICA [Concomitant]
     Indication: PRODUCT USED FOR UNKNOWN INDICATION
     Route: 048
  3. FENTANYL [Concomitant]
     Indication: PAIN
     Dosage: 100 UG/HR, UNK
     Route: 062

REACTIONS (1)
  - Pain [Not Recovered/Not Resolved]
